FAERS Safety Report 16920942 (Version 1)
Quarter: 2019Q4

REPORT INFORMATION
  Report Type: Spontaneous
  Country: GB (occurrence: GB)
  Receive Date: 20191015
  Receipt Date: 20191015
  Transmission Date: 20200122
  Serious: Yes (Death, Hospitalization)
  Sender: FDA-Public Use
  Company Number: GB-MYLANLABS-2019M1096264

PATIENT
  Age: 88 Year
  Sex: Female

DRUGS (15)
  1. BISOPROLOL [Concomitant]
     Active Substance: BISOPROLOL
     Dosage: 1.25 MILLIGRAM, QD
     Route: 050
  2. SALBUTAMOL [Concomitant]
     Active Substance: ALBUTEROL
     Dosage: 1 DOSAGE FORM, PRN(2.5MG/2.5ML. 4 TIMES DAILY.)
     Route: 050
  3. SANDO K                            /00031402/ [Concomitant]
     Dosage: 2 DOSAGE FORM, QD
     Route: 050
  4. E45 [Concomitant]
     Active Substance: LANOLIN\LIGHT MINERAL OIL\PARAFFIN
     Dosage: UNK UNK, PRN
     Route: 061
  5. BISACODYL. [Concomitant]
     Active Substance: BISACODYL
     Dosage: 10 MILLIGRAM, PRN
     Route: 054
  6. MOVICOL [Concomitant]
     Active Substance: POLYETHYLENE GLYCOL 3350\POTASSIUM CHLORIDE\SODIUM BICARBONATE\SODIUM CHLORIDE
     Dosage: 6.9 GRAM, QD
     Route: 050
  7. DOMPERIDONE [Concomitant]
     Active Substance: DOMPERIDONE
     Dosage: 20 MILLIGRAM, QD(1MG/ML)
     Route: 048
  8. LANSOPRAZOLE. [Concomitant]
     Active Substance: LANSOPRAZOLE
     Dosage: 30 MILLIGRAM, QD(MORNING)
     Route: 050
  9. HYOSCINE [Concomitant]
     Active Substance: SCOPOLAMINE
     Dosage: 1 DOSAGE FORM, Q3D(1MG/72HOURS)
     Route: 062
  10. SPATONE [Concomitant]
     Dosage: 1 DOSAGE FORM, QD
     Route: 050
  11. SODIUM CHLORIDE. [Concomitant]
     Active Substance: SODIUM CHLORIDE
     Dosage: 2.5 MILLILITER, PRN
     Route: 050
  12. CLOPIDOGREL [Suspect]
     Active Substance: CLOPIDOGREL BISULFATE
     Indication: PRODUCT USED FOR UNKNOWN INDICATION
     Dosage: 75 MILLIGRAM, QD
     Route: 050
     Dates: end: 20190616
  13. BUPRENORPHINE. [Concomitant]
     Active Substance: BUPRENORPHINE
     Dosage: 1 PATCH WEEKLY WEDNESDAY. 5 MICROGRAMS/HOUR TRANSDERMAL PATCHES
     Route: 062
  14. PARACETAMOL [Concomitant]
     Active Substance: ACETAMINOPHEN
     Dosage: 500 MILLIGRAM, PRN(1-2 FOUR TIMES DAILY)
     Route: 050
  15. FUROSEMIDE. [Concomitant]
     Active Substance: FUROSEMIDE
     Dosage: 20MG/5ML. UNCLEAR IF 20MG ONCE DAILY OR 40MG ONCE DAILY
     Route: 048

REACTIONS (4)
  - Gastrointestinal haemorrhage [Fatal]
  - Acute kidney injury [Not Recovered/Not Resolved]
  - Dyspnoea [Not Recovered/Not Resolved]
  - Respiratory rate increased [Not Recovered/Not Resolved]

NARRATIVE: CASE EVENT DATE: 20190616
